FAERS Safety Report 4380510-6 (Version None)
Quarter: 2004Q2

REPORT INFORMATION
  Report Type: 
  Country: None (occurrence: None)
  Receive Date: 20040614
  Receipt Date: 20031124
  Transmission Date: 20050107
  Serious: Yes (Hospitalization)
  Sender: FDA-Public Use
  Company Number: WAES 0311USA02632

PATIENT
  Age: 35 Year
  Sex: Male

DRUGS (1)
  1. COZAAR [Suspect]
     Dosage: 100 MG/PO
     Route: 048

REACTIONS (2)
  - CHEST PAIN [None]
  - ERECTILE DYSFUNCTION [None]
